FAERS Safety Report 8494681-3 (Version None)
Quarter: 2012Q3

REPORT INFORMATION
  Report Type: 
  Country: None (occurrence: None)
  Receive Date: 20120709
  Receipt Date: 20120702
  Transmission Date: 20120928
  Serious: Yes (Hospitalization)
  Sender: FDA-Public Use
  Company Number: US-BAYER-2012-044182

PATIENT
  Age: 29 Year
  Sex: Female

DRUGS (5)
  1. DROSPIRENONE AND ETHINYL ESTRADIOL [Suspect]
     Dosage: UNK
     Dates: start: 20050724, end: 20090721
  2. IBUPROFEN (ADVIL) [Concomitant]
     Route: 048
  3. YASMIN [Suspect]
     Dosage: UNK
     Dates: start: 20050724, end: 20090721
  4. ZOLOFT [Concomitant]
     Indication: DEPRESSION
     Dosage: 50 MG, UNK
     Route: 048
     Dates: start: 20080630
  5. MEDROL [Concomitant]
     Indication: PLANTAR FASCIITIS
     Dosage: UNK
     Route: 048
     Dates: start: 20090714

REACTIONS (5)
  - DEEP VEIN THROMBOSIS [None]
  - EMOTIONAL DISTRESS [None]
  - PAIN [None]
  - INJURY [None]
  - ANHEDONIA [None]
